FAERS Safety Report 5346823-6 (Version None)
Quarter: 2007Q2

REPORT INFORMATION
  Report Type: 
  Country: None (occurrence: None)
  Receive Date: 20070604
  Receipt Date: 20070523
  Transmission Date: 20071010
  Serious: Yes (Death)
  Sender: FDA-Public Use
  Company Number: 2007-00580

PATIENT
  Age: 64 Year
  Sex: Female

DRUGS (14)
  1. VELCADE [Suspect]
     Indication: MULTIPLE MYELOMA
     Dosage: 1.00 MG/M2
     Dates: start: 20070219, end: 20070226
  2. DEXAMETHASONE 0.5MG TAB [Concomitant]
  3. ZOFRAN [Concomitant]
  4. PIPERACILLIN SODIUM AND TAZOBACTAM SODIUM [Concomitant]
  5. SULFAMETHOXAZOLE + TRIMETHOPRIM [Concomitant]
  6. RABEPRAZOLE SODIUM [Concomitant]
  7. PROMAC /JPN/ (POLAPREZINC) [Concomitant]
  8. BIOFERMIN (STREPTOCOCCUS FAECALIS, LACTOBACILLUS ACIDOPHILUS, BACILLUS [Concomitant]
  9. MAGNESIUM OXIDE (MAGNESIUM OXIDE) [Concomitant]
  10. PENTAZOCINE LACTATE [Concomitant]
  11. SILECE (FLUNITRAZEPAM) [Concomitant]
  12. PRIMPERAN TAB [Concomitant]
  13. FUNGIZONE [Concomitant]
  14. ITRACONAZOLE [Concomitant]

REACTIONS (5)
  - NAUSEA [None]
  - PNEUMONIA ASPIRATION [None]
  - RESPIRATORY FAILURE [None]
  - SEPSIS [None]
  - SEPTIC SHOCK [None]
